FAERS Safety Report 7603583-3 (Version None)
Quarter: 2011Q3

REPORT INFORMATION
  Report Type: 
  Country: None (occurrence: None)
  Receive Date: 20110712
  Receipt Date: 20110705
  Transmission Date: 20111222
  Serious: Yes (Hospitalization, Other)
  Sender: FDA-Public Use
  Company Number: CZ-ABBOTT-10P-217-0664163-00

PATIENT
  Age: 80 Year
  Sex: Male
  Weight: 82 kg

DRUGS (19)
  1. WARFARIN SODIUM [Suspect]
     Indication: PRODUCT USED FOR UNKNOWN INDICATION
     Route: 048
     Dates: start: 20010101, end: 20090101
  2. ALLOPURINOL [Concomitant]
     Indication: PRODUCT USED FOR UNKNOWN INDICATION
     Route: 048
     Dates: start: 20090201
  3. FUROSEMIDE [Concomitant]
     Indication: PRODUCT USED FOR UNKNOWN INDICATION
     Route: 048
     Dates: start: 20061001
  4. EPLERENONE [Suspect]
     Route: 048
     Dates: start: 20070621, end: 20090612
  5. POTASSIUM CHLORIDE [Concomitant]
     Dates: start: 20010101, end: 20100401
  6. WARFARIN SODIUM [Suspect]
     Route: 048
     Dates: start: 20090101, end: 20090607
  7. WARFARIN SODIUM [Suspect]
     Route: 048
     Dates: start: 20100101, end: 20100301
  8. EPLERENONE [Suspect]
     Indication: CARDIAC FAILURE
     Route: 048
     Dates: start: 20070116, end: 20070213
  9. PREDNISONE [Concomitant]
     Indication: PRODUCT USED FOR UNKNOWN INDICATION
     Route: 048
     Dates: start: 20100407
  10. PERINDOPRIL [Concomitant]
     Indication: PRODUCT USED FOR UNKNOWN INDICATION
     Route: 048
     Dates: start: 20061001
  11. ANOPYRIN [Concomitant]
     Indication: PRODUCT USED FOR UNKNOWN INDICATION
     Route: 048
     Dates: start: 20100412
  12. DICLOFENAC [Concomitant]
     Indication: PRODUCT USED FOR UNKNOWN INDICATION
     Dates: start: 20100407
  13. EPLERENONE [Suspect]
     Route: 048
     Dates: start: 20070214, end: 20070620
  14. WARFARIN SODIUM [Suspect]
     Route: 048
     Dates: start: 20090608, end: 20090925
  15. WARFARIN SODIUM [Suspect]
     Route: 048
     Dates: start: 20090930, end: 20100101
  16. WARFARIN SODIUM [Suspect]
     Route: 048
     Dates: start: 20100301, end: 20100401
  17. VEROSPIRON [Concomitant]
     Indication: PRODUCT USED FOR UNKNOWN INDICATION
     Route: 048
     Dates: start: 20090613
  18. CARVEDILOL [Concomitant]
     Indication: PRODUCT USED FOR UNKNOWN INDICATION
     Route: 048
     Dates: start: 20061001
  19. POTASSIUM CHLORIDE [Concomitant]
     Indication: PRODUCT USED FOR UNKNOWN INDICATION
     Route: 048
     Dates: start: 20100107, end: 20100212

REACTIONS (4)
  - ANAEMIA [None]
  - OVERDOSE [None]
  - EPISTAXIS [None]
  - PSORIATIC ARTHROPATHY [None]
